FAERS Safety Report 6165629-1 (Version None)
Quarter: 2009Q2

REPORT INFORMATION
  Report Type: 
  Country: None (occurrence: None)
  Receive Date: 20090422
  Receipt Date: 20080611
  Transmission Date: 20091009
  Serious: Yes (Other)
  Sender: FDA-Public Use
  Company Number: 2008-179123-NL

PATIENT
  Sex: Female
  Weight: 57.6 kg

DRUGS (6)
  1. PUREGON [Suspect]
     Indication: INFERTILITY
     Dosage: 150 IU DAILY
     Dates: start: 20080510, end: 20080519
  2. PREGNYL [Suspect]
     Indication: INFERTILITY
     Dosage: 650 IU
     Dates: start: 20080519, end: 20080519
  3. ORGALUTRAN [Concomitant]
  4. MENOPUR [Concomitant]
  5. LEUPROLIDE ACETATE [Concomitant]
  6. ALBUMIN (HUMAN) [Concomitant]

REACTIONS (1)
  - OVARIAN HYPERSTIMULATION SYNDROME [None]
